FAERS Safety Report 17017329 (Version 1)
Quarter: 2019Q4

REPORT INFORMATION
  Report Type: Spontaneous
  Country: US (occurrence: US)
  Receive Date: 20191111
  Receipt Date: 20191111
  Transmission Date: 20200122
  Serious: Yes (Other)
  Sender: FDA-Public Use
  Company Number: US-MYLANLABS-2019M1105662

PATIENT
  Sex: Female
  Weight: 78 kg

DRUGS (1)
  1. ESTRADIOL VAGINAL CREAM USP [Suspect]
     Active Substance: ESTRADIOL
     Indication: VULVOVAGINAL DRYNESS
     Dosage: 1 MILLIGRAM, BIWEEKLY
     Route: 067

REACTIONS (2)
  - Hypothyroidism [Not Recovered/Not Resolved]
  - Weight increased [Not Recovered/Not Resolved]
